FAERS Safety Report 6111290-1 (Version None)
Quarter: 2009Q1

REPORT INFORMATION
  Report Type: 
  Country: None (occurrence: None)
  Receive Date: 20090311
  Receipt Date: 20090302
  Transmission Date: 20090719
  Serious: Yes (Hospitalization)
  Sender: FDA-Public Use
  Company Number: B0564057A

PATIENT
  Age: 54 Year
  Sex: Male

DRUGS (2)
  1. NICABATE CQ 4MG LOZENGE [Suspect]
     Indication: DRUG WITHDRAWAL MAINTENANCE THERAPY
     Route: 002
     Dates: start: 20080601
  2. SCHIZOPHRENIA DRUG (UNSPECIFIED) [Concomitant]
     Indication: SCHIZOPHRENIA
     Route: 065

REACTIONS (7)
  - CIRCULATORY COLLAPSE [None]
  - HYPOTHERMIA [None]
  - INTENTIONAL DRUG MISUSE [None]
  - LIP DISCOLOURATION [None]
  - MUSCLE DISORDER [None]
  - OVERDOSE [None]
  - PSYCHOMOTOR HYPERACTIVITY [None]
